FAERS Safety Report 9880809 (Version 1)
Quarter: 2014Q1

REPORT INFORMATION
  Report Type: Spontaneous
  Country: BR (occurrence: None)
  Receive Date: 20140205
  Receipt Date: 20140205
  Transmission Date: 20141002
  Serious: Yes (Hospitalization)
  Sender: FDA-Public Use
  Company Number: DSJ-2014-01865

PATIENT
  Age: 57 Year
  Sex: Female
  Weight: 62 kg

DRUGS (7)
  1. BENICAR (OLMESARTAN MEDOXOMIL) (TABLET) (OLMESARTAN MEDOXOMIL) [Suspect]
     Indication: HYPERTENSION
     Route: 048
     Dates: start: 2012
  2. PREDNISOLONE (PREDNISOLONE) [Suspect]
     Indication: SINUSITIS
     Route: 048
     Dates: start: 2013
  3. BENICAR HCT (HYDROCHLOROTHIAZIDE, OLMESARTAN MEDOXOMIL) (TABLET) (HYDROCHLOROTHIAZIDE, OLMESARTAN MEDOXOMIL) [Suspect]
     Indication: HYPERTENSION
     Route: 048
     Dates: start: 2012, end: 2012
  4. MOXIFLOXACIN [Suspect]
     Indication: SINUSITIS
     Route: 048
     Dates: start: 201305
  5. LEVOTHYROXINE SODIUM (LEVOTHYROXINE SODIUM) [Concomitant]
  6. PAROXETINE (PAROXETINE) [Concomitant]
  7. EZETIMIBE (EZETIMIBE) [Concomitant]

REACTIONS (15)
  - Dizziness [None]
  - Orthostatic hypotension [None]
  - Balance disorder [None]
  - Vision blurred [None]
  - Muscle spasms [None]
  - Hypercholesterolaemia [None]
  - Influenza [None]
  - Sinusitis [None]
  - Aggression [None]
  - Mental disorder [None]
  - Blood uric acid increased [None]
  - Cervical conisation [None]
  - Restlessness [None]
  - Muscle spasms [None]
  - Oesophageal spasm [None]
